FAERS Safety Report 4560527-9 (Version None)
Quarter: 2005Q1

REPORT INFORMATION
  Report Type: 
  Country: None (occurrence: None)
  Receive Date: 20050125
  Receipt Date: 20050117
  Transmission Date: 20050727
  Serious: Yes (Death)
  Sender: FDA-Public Use
  Company Number: AR-GLAXOSMITHKLINE-A0510676B

PATIENT
  Sex: Male

DRUGS (5)
  1. ZIDOVUDINE [Suspect]
     Indication: HIV INFECTION
     Dates: start: 20040101
  2. LAMIVUDINE [Suspect]
     Indication: HIV INFECTION
     Dosage: 150MG PER DAY
     Dates: start: 20040101
  3. NEVIRAPINE [Concomitant]
     Indication: HIV INFECTION
     Dosage: 200MG PER DAY
     Dates: start: 20040101
  4. FOLATE [Concomitant]
  5. PRENATAL VITAMINS [Concomitant]

REACTIONS (12)
  - ANTIBODY TEST POSITIVE [None]
  - ASCITES [None]
  - CARDIAC FAILURE [None]
  - CARDIOMEGALY [None]
  - DRUG EXPOSURE DURING PREGNANCY [None]
  - HEPATIC FAILURE [None]
  - HEPATOSPLENOMEGALY NEONATAL [None]
  - HERPES ZOSTER [None]
  - HYDROPS FOETALIS [None]
  - NEONATAL DISORDER [None]
  - RENAL DISORDER [None]
  - UMBILICAL CORD ABNORMALITY [None]
